FAERS Safety Report 19519729 (Version 1)
Quarter: 2021Q3

REPORT INFORMATION
  Report Type: Report from Study
  Country: NL (occurrence: NL)
  Receive Date: 20210712
  Receipt Date: 20210712
  Transmission Date: 20211014
  Serious: Yes (Other)
  Sender: FDA-Public Use
  Company Number: NL-MYLANLABS-2021M1040470

PATIENT

DRUGS (4)
  1. CLEMASTINE [Suspect]
     Active Substance: CLEMASTINE
     Indication: PROPHYLAXIS
     Dosage: UNK
     Route: 048
  2. CLEMASTINE [Suspect]
     Active Substance: CLEMASTINE
     Indication: CONTRAST MEDIA ALLERGY
  3. PREDNISOLONE. [Suspect]
     Active Substance: PREDNISOLONE
     Indication: PROPHYLAXIS
     Dosage: UNK
     Route: 048
  4. PREDNISOLONE. [Suspect]
     Active Substance: PREDNISOLONE
     Indication: CONTRAST MEDIA ALLERGY

REACTIONS (1)
  - Drug ineffective [Unknown]
